FAERS Safety Report 4971769-2 (Version None)
Quarter: 2006Q2

REPORT INFORMATION
  Report Type: 
  Country: None (occurrence: None)
  Receive Date: 20060407
  Receipt Date: 20060322
  Transmission Date: 20061013
  Serious: Yes (Other)
  Sender: FDA-Public Use
  Company Number: DSA_27943_2006

PATIENT
  Sex: Male

DRUGS (1)
  1. ENALAPRIL MALEATE [Suspect]
     Dosage: DF

REACTIONS (1)
  - PETIT MAL EPILEPSY [None]
